FAERS Safety Report 22315627 (Version 1)
Quarter: 2023Q2

REPORT INFORMATION
  Report Type: Spontaneous
  Country: US (occurrence: US)
  Receive Date: 20230512
  Receipt Date: 20230512
  Transmission Date: 20230721
  Serious: Yes (Other)
  Sender: FDA-Public Use
  Company Number: US-MYLANLABS-2023M1049402

PATIENT

DRUGS (2)
  1. VORICONAZOLE [Interacting]
     Active Substance: VORICONAZOLE
     Indication: Prophylaxis
     Dosage: UNK
     Route: 065
  2. GLECAPREVIR\PIBRENTASVIR [Interacting]
     Active Substance: GLECAPREVIR\PIBRENTASVIR
     Indication: Prophylaxis
     Dosage: UNK
     Route: 065

REACTIONS (2)
  - Hyperbilirubinaemia [Unknown]
  - Drug interaction [Unknown]
